FAERS Safety Report 6255727-6 (Version None)
Quarter: 2009Q3

REPORT INFORMATION
  Report Type: 
  Country: None (occurrence: None)
  Receive Date: 20090701
  Receipt Date: 20090624
  Transmission Date: 20100115
  Serious: Yes (Other)
  Sender: FDA-Public Use
  Company Number: SPV1-2009-01317

PATIENT
  Age: 18 Year
  Sex: Male
  Weight: 60 kg

DRUGS (1)
  1. ELAPRASE [Suspect]
     Indication: MUCOPOLYSACCHARIDOSIS II
     Dosage: 30 MG, 1 X/WEEK, IV DRIP
     Route: 041
     Dates: start: 20090211

REACTIONS (2)
  - AURA [None]
  - TEMPORAL LOBE EPILEPSY [None]
